FAERS Safety Report 17794016 (Version 1)
Quarter: 2020Q2

REPORT INFORMATION
  Report Type: Spontaneous
  Country: DE (occurrence: DE)
  Receive Date: 20200516
  Receipt Date: 20200516
  Transmission Date: 20200714
  Serious: Yes (Hospitalization)
  Sender: FDA-Public Use
  Company Number: DE-TEVA-2020-DE-1234766

PATIENT
  Age: 78 Year
  Sex: Female

DRUGS (15)
  1. HYDROXYCHLOROQUINE [Concomitant]
     Active Substance: HYDROXYCHLOROQUINE
     Dosage: 200 MILLIGRAM DAILY;  0-0-1-0
  2. COLECALCIFEROL (VITAMIN D) [Concomitant]
     Dosage: 20000 IU, ONCE A WEEK ON FRIDAYS
  3. MAGNESIOCARD 5MMOL [Concomitant]
     Dosage: 1 DOSAGE FORMS DAILY; 1-0-0-0, POWDER
  4. TORASEMID [Suspect]
     Active Substance: TORSEMIDE
     Dosage: 10 MILLIGRAM DAILY;  1-0-0-0
  5. RISPERIDON [Suspect]
     Active Substance: RISPERIDONE
     Dosage: .5 MILLIGRAM DAILY;  0-0-0-1
  6. PHENPROCOUMON [Concomitant]
     Active Substance: PHENPROCOUMON
     Dosage: 3 MG, ACCORDING TO INR
  7. LEVOTHYROXIN-NATRIUM [Concomitant]
     Active Substance: LEVOTHYROXINE SODIUM
     Dosage: .1 MILLIGRAM DAILY;  1-0-0-0
  8. FOLSAURE [Concomitant]
     Active Substance: FOLIC ACID
     Dosage: 5 MILLIGRAM DAILY;  0-1-0-0
  9. BENSERAZID/LEVODOPA [Concomitant]
     Active Substance: BENSERAZIDE\LEVODOPA
     Dosage: 3 DOSAGE FORMS DAILY; 25|100 MG, 1-1-1-0
  10. BISOPROLOL [Concomitant]
     Active Substance: BISOPROLOL
     Dosage: 2.5 MILLIGRAM DAILY;  1-0-0-0
  11. KALINOR RETARD P [Concomitant]
     Active Substance: POTASSIUM CHLORIDE
     Dosage: 600 MILLIGRAM DAILY;  1-0-0-0
  12. NOVODIGAL MITE 0,1MG [Concomitant]
     Dosage: .1 MILLIGRAM DAILY;  1-0-0-0
  13. RISEDRONSAURE [Concomitant]
     Dosage: 35 MG, ONCE A WEEK ON FRIDAYS
  14. PREDNISOLON [Concomitant]
     Active Substance: PREDNISOLONE
     Dosage: .5 DOSAGE FORMS DAILY; 1 MG, 0.5-0-0-0
  15. METAMIZOL [Concomitant]
     Active Substance: METAMIZOLE SODIUM
     Dosage: 500 MG, NEED

REACTIONS (9)
  - Apathy [Unknown]
  - Psychomotor retardation [Unknown]
  - Dehydration [Unknown]
  - Blood pressure increased [Unknown]
  - Head discomfort [Unknown]
  - Body temperature increased [Unknown]
  - Somnolence [Unknown]
  - Muscular weakness [Unknown]
  - Fall [Unknown]
